FAERS Safety Report 20973748 (Version 2)
Quarter: 2022Q3

REPORT INFORMATION
  Report Type: Spontaneous
  Country: BR (occurrence: BR)
  Receive Date: 20220617
  Receipt Date: 20220712
  Transmission Date: 20221027
  Serious: Yes (Death, Life-Threatening, Hospitalization, Other)
  Sender: FDA-Public Use
  Company Number: BR-MLMSERVICE-20220602-3594642-1

PATIENT
  Age: 52 Year
  Sex: Male
  Weight: 84 kg

DRUGS (3)
  1. TACROLIMUS [Suspect]
     Active Substance: TACROLIMUS
     Indication: Immunosuppressant drug therapy
     Dosage: 8 MILLIGRAM, BID (EVERY 12 HOURS0
     Route: 048
     Dates: start: 20170325, end: 20170605
  2. PREDNISONE [Suspect]
     Active Substance: PREDNISONE
     Indication: Immunosuppressant drug therapy
     Dosage: 20 MILLIGRAM, OD
     Route: 048
     Dates: start: 20170325, end: 20170605
  3. MYCOPHENOLIC ACID [Suspect]
     Active Substance: MYCOPHENOLIC ACID
     Indication: Immunosuppressant drug therapy
     Dosage: 360 MILLIGRAM, BID (EVERY 12 HOURS)
     Route: 065
     Dates: start: 20170325, end: 20170526

REACTIONS (9)
  - Leukopenia [Fatal]
  - Infection reactivation [Fatal]
  - Renal failure [Fatal]
  - Disseminated tuberculosis [Fatal]
  - Hepatic failure [Fatal]
  - Pulmonary congestion [Fatal]
  - Meningitis [Fatal]
  - Haemophagocytic lymphohistiocytosis [Fatal]
  - Shock [Fatal]

NARRATIVE: CASE EVENT DATE: 20170525
